FAERS Safety Report 24269332 (Version 2)
Quarter: 2024Q3

REPORT INFORMATION
  Report Type: Report from Study
  Country: BS (occurrence: BS)
  Receive Date: 20240830
  Receipt Date: 20240902
  Transmission Date: 20241016
  Serious: Yes (Death)
  Sender: BIOVITRUM
  Company Number: BS-AstraZeneca-2024A197180

PATIENT
  Age: 27 Week
  Sex: Female

DRUGS (1)
  1. SYNAGIS [Suspect]
     Active Substance: PALIVIZUMAB
     Indication: Antiviral prophylaxis
     Dosage: EVERY FOUR WEEKS
     Route: 030
     Dates: start: 20240702

REACTIONS (1)
  - Death [Fatal]

NARRATIVE: CASE EVENT DATE: 20240822
